FAERS Safety Report 8374772-8 (Version None)
Quarter: 2012Q2

REPORT INFORMATION
  Report Type: 
  Country: None (occurrence: None)
  Receive Date: 20120521
  Receipt Date: 20120509
  Transmission Date: 20120825
  Serious: Yes (Hospitalization)
  Sender: FDA-Public Use
  Company Number: DE-TEVA-337273GER

PATIENT
  Age: 69 Year
  Sex: Female

DRUGS (2)
  1. METOPROLOL-RATIOPHARM 100 MG [Suspect]
     Dosage: 200 MILLIGRAM;
     Route: 048
  2. LERCANIDIPINE [Concomitant]
     Dosage: 10 MILLIGRAM;
     Route: 048

REACTIONS (1)
  - IIIRD NERVE PARALYSIS [None]
